FAERS Safety Report 18807852 (Version 2)
Quarter: 2021Q3

REPORT INFORMATION
  Report Type: Spontaneous
  Country: CA (occurrence: CA)
  Receive Date: 20210129
  Receipt Date: 20210914
  Transmission Date: 20211014
  Serious: Yes (Hospitalization, Other)
  Sender: FDA-Public Use
  Company Number: CA-PFIZER INC-2021076173

PATIENT
  Age: 89 Year
  Sex: Female
  Weight: 70.8 kg

DRUGS (11)
  1. AMIODARONE SANDOZ [Suspect]
     Active Substance: AMIODARONE
     Dosage: UNK
     Route: 065
  2. ELIQUIS [Concomitant]
     Active Substance: APIXABAN
     Indication: PROMOTION OF PERIPHERAL CIRCULATION
     Dosage: 5 MILLIGRAM, BID
     Route: 065
     Dates: start: 20190513, end: 20200918
  3. MURO 128 [Concomitant]
     Active Substance: SODIUM CHLORIDE
     Dosage: UNK UNK, QD
     Route: 065
     Dates: start: 20190411, end: 20191212
  4. JAMP VITAMIN B12 [Concomitant]
     Active Substance: CYANOCOBALAMIN
     Dosage: 250 MICROGRAM, QD
     Route: 065
     Dates: start: 20190513, end: 20200918
  5. MAGNESIUM [Concomitant]
     Active Substance: MAGNESIUM
     Dosage: 100 MILLIGRAM, QD
     Route: 065
     Dates: start: 20190124, end: 20200827
  6. AMIODARONE TEVA [AMIODARONE] [Concomitant]
     Dosage: 200 MILLIGRAM, QD
     Dates: start: 20190513, end: 20200918
  7. PANTOLOC [Suspect]
     Active Substance: PANTOPRAZOLE SODIUM
     Dosage: UNK
     Route: 065
  8. MURO 128 [Concomitant]
     Active Substance: SODIUM CHLORIDE
     Dosage: 1 GTT DROPS, QID
     Route: 065
     Dates: start: 20190124, end: 20191212
  9. M PANTOPRAZOLE [Concomitant]
     Indication: DRUG THERAPY
     Dosage: 40 MILLIGRAM, QD
     Route: 065
     Dates: start: 20190513, end: 20200918
  10. SANDOZ CANDESARTAN [Concomitant]
     Active Substance: CANDESARTAN CILEXETIL
     Indication: BLOOD PRESSURE ABNORMAL
     Dosage: 4 MILLIGRAM, QD
     Route: 065
     Dates: start: 20190513, end: 20200918
  11. M ATORVASTATIN [Concomitant]
     Indication: BLOOD CHOLESTEROL ABNORMAL
     Dosage: 10 MILLIGRAM, QD
     Route: 065
     Dates: start: 20190513, end: 20200918

REACTIONS (2)
  - Inappropriate antidiuretic hormone secretion [Unknown]
  - Pneumonitis [Unknown]
